FAERS Safety Report 16061708 (Version 2)
Quarter: 2019Q1

REPORT INFORMATION
  Report Type: Spontaneous
  Country: US (occurrence: US)
  Receive Date: 20190312
  Receipt Date: 20190315
  Transmission Date: 20190418
  Serious: No
  Sender: FDA-Public Use
  Company Number: US-PFIZER INC-2017174881

PATIENT
  Age: 71 Year
  Sex: Male
  Weight: 80 kg

DRUGS (26)
  1. LYRICA [Suspect]
     Active Substance: PREGABALIN
     Indication: PLASMA CELL MYELOMA
     Dosage: 75 MG, 2X/DAY [EVERY 12 HOURS]
     Route: 048
     Dates: end: 20190221
  2. DIPHENHYDRAMINE HCL [Concomitant]
     Active Substance: DIPHENHYDRAMINE HYDROCHLORIDE
     Dosage: 25 MG, AS NEEDED (1 TAB ORAL DAILY PRN)
     Route: 048
  3. PLAVIX [Concomitant]
     Active Substance: CLOPIDOGREL BISULFATE
     Dosage: 75 MG, DAILY
     Route: 048
  4. VITAMIN B6 [Concomitant]
     Active Substance: PYRIDOXINE HYDROCHLORIDE
     Dosage: 200 MG, 2X/DAY
     Route: 048
  5. ZOMETA [Concomitant]
     Active Substance: ZOLEDRONIC ACID
     Dosage: UNK, [4MG/5ML], 1X/DAY
     Route: 042
     Dates: start: 20170221
  6. REVLIMID [Concomitant]
     Active Substance: LENALIDOMIDE
     Dosage: 10 MG, 1X/DAY
     Route: 048
  7. VELCADE [Concomitant]
     Active Substance: BORTEZOMIB
     Dosage: 2.6 MG, 1X/DAY
     Route: 058
     Dates: start: 20151110
  8. SODIUM CHLORIDE. [Concomitant]
     Active Substance: SODIUM CHLORIDE
     Dosage: 1000 ML, 1X/DAY
     Route: 042
     Dates: start: 20151127
  9. SODIUM CHLORIDE. [Concomitant]
     Active Substance: SODIUM CHLORIDE
     Dosage: 250 ML, 1X/DAY
     Dates: start: 20170508
  10. VELCADE [Concomitant]
     Active Substance: BORTEZOMIB
     Dosage: 2.6 MG, 1X/DAY
     Route: 058
     Dates: start: 20151216
  11. VITAMIN D3 [Concomitant]
     Active Substance: CHOLECALCIFEROL
     Dosage: 1000 IU, 2X/DAY
     Route: 048
  12. SIMVASTATIN. [Concomitant]
     Active Substance: SIMVASTATIN
     Dosage: 40 MG, DAILY
     Route: 048
  13. IBUPROFEN. [Concomitant]
     Active Substance: IBUPROFEN
     Dosage: 200 MG, AS NEEDED (1-2 TAB ORAL AS NEEDED PRN)
     Route: 048
  14. ASPIRIN. [Concomitant]
     Active Substance: ASPIRIN
     Dosage: 81 MG, DAILY
     Route: 048
  15. ZOMETA [Concomitant]
     Active Substance: ZOLEDRONIC ACID
     Dosage: 4 MG, 1X/DAY
     Route: 042
     Dates: start: 20171006
  16. ZOFRAN [Concomitant]
     Active Substance: ONDANSETRON HYDROCHLORIDE
     Dosage: 10 MG, 1X/DAY
     Route: 042
     Dates: start: 20151127
  17. LYRICA [Suspect]
     Active Substance: PREGABALIN
     Indication: NEUROPATHY PERIPHERAL
     Dosage: 75 MG, 2X/DAY (BID)
     Route: 048
     Dates: start: 2016
  18. METOPROLOL TARTRATE. [Concomitant]
     Active Substance: METOPROLOL TARTRATE
     Dosage: 25 MG, 2X/DAY
     Route: 048
  19. OXYCODONE [Concomitant]
     Active Substance: OXYCODONE
     Dosage: 5 MG, AS NEEDED [1 TAB ORAL EVERY6HOURS PRN]
     Route: 048
  20. IBUPROFEN. [Concomitant]
     Active Substance: IBUPROFEN
     Dosage: 800 MG, AS NEEDED [1 TAB ORAL TWICE A DAY PRN]
     Route: 048
  21. GAVISCON [Concomitant]
     Active Substance: ALUMINUM HYDROXIDE\MAGNESIUM CARBONATE
     Dosage: 1 DF, DAILY [MAGNESIUM CARBONATE: 160 MG]/ [ALUMINIUM HYDROXIDE: 105MG ]
     Route: 048
  22. CALCIUM [Concomitant]
     Active Substance: CALCIUM
     Dosage: 600 MG, 2X/DAY
     Route: 048
  23. REVLIMID [Concomitant]
     Active Substance: LENALIDOMIDE
     Indication: NEOPLASM MALIGNANT
     Dosage: 10 MG, 1X/DAY [1 CAPSULE ORAL DAILY FOR 21 OF 28 DAYS]; [ONCE A DAY FOR 21 DAYS THEN A WEEK OFF]
     Route: 048
     Dates: start: 20170116
  24. FLUTICASONE. [Concomitant]
     Active Substance: FLUTICASONE
     Dosage: 50 UG, DAILY [1 DOSE NASAL DAILY]
     Route: 045
  25. ZOMETA [Concomitant]
     Active Substance: ZOLEDRONIC ACID
     Dosage: 4 MG, 1X/DAY
     Route: 042
     Dates: start: 20171110
  26. DECADRON [Concomitant]
     Active Substance: DEXAMETHASONE
     Dosage: 10 MG, 1X/DAY
     Route: 042
     Dates: start: 20151127

REACTIONS (2)
  - Intentional product use issue [Unknown]
  - Drug effect incomplete [Unknown]
